FAERS Safety Report 7051589-8 (Version None)
Quarter: 2010Q4

REPORT INFORMATION
  Report Type: 
  Country: None (occurrence: None)
  Receive Date: 20101019
  Receipt Date: 20101007
  Transmission Date: 20110411
  Serious: Yes (Hospitalization, Other)
  Sender: FDA-Public Use
  Company Number: JP-ROCHE-720351

PATIENT
  Age: 81 Year
  Sex: Male

DRUGS (8)
  1. AVASTIN [Suspect]
     Indication: COLON CANCER METASTATIC
     Route: 041
     Dates: start: 20100805, end: 20100805
  2. AVASTIN [Suspect]
     Route: 041
     Dates: start: 20100828, end: 20100828
  3. XELODA [Suspect]
     Indication: COLON CANCER METASTATIC
     Route: 048
     Dates: start: 20100624, end: 20100708
  4. XELODA [Suspect]
     Route: 048
     Dates: start: 20100805, end: 20100801
  5. XELODA [Suspect]
     Dosage: STOP: 2010
     Route: 048
     Dates: start: 20100828
  6. ELPLAT [Suspect]
     Indication: COLON CANCER METASTATIC
     Route: 041
     Dates: start: 20100624, end: 20100624
  7. ELPLAT [Suspect]
     Dosage: NOTE: DOSAGE IS UNCERTAIN
     Route: 041
     Dates: start: 20100805, end: 20100805
  8. ELPLAT [Suspect]
     Route: 041
     Dates: start: 20100828, end: 20100828

REACTIONS (5)
  - BONE MARROW FAILURE [None]
  - HAEMATURIA [None]
  - PLATELET COUNT DECREASED [None]
  - PYREXIA [None]
  - WHITE BLOOD CELL COUNT DECREASED [None]
